FAERS Safety Report 12405162 (Version 1)
Quarter: 2016Q2

REPORT INFORMATION
  Report Type: Spontaneous
  Country: FR (occurrence: FR)
  Receive Date: 20160525
  Receipt Date: 20160525
  Transmission Date: 20160815
  Serious: Yes (Hospitalization)
  Sender: FDA-Public Use
  Company Number: FR-ASTRAZENECA-2016SE54287

PATIENT
  Age: 24919 Day
  Sex: Male

DRUGS (8)
  1. TAREG [Suspect]
     Active Substance: VALSARTAN
     Indication: CHRONIC KIDNEY DISEASE
     Route: 048
     Dates: start: 201601
  2. UVEDOSE [Concomitant]
     Active Substance: CHOLECALCIFEROL
  3. PARACETAMOL [Concomitant]
     Active Substance: ACETAMINOPHEN
  4. INEXIUM [Suspect]
     Active Substance: ESOMEPRAZOLE
     Indication: ABDOMINAL PAIN UPPER
     Route: 048
     Dates: end: 20160325
  5. TAREG [Suspect]
     Active Substance: VALSARTAN
     Indication: CHRONIC KIDNEY DISEASE
     Route: 048
     Dates: end: 201601
  6. LEVOTHYROX [Concomitant]
     Active Substance: LEVOTHYROXINE
  7. KARDEGIC [Concomitant]
     Active Substance: ASPIRIN LYSINE
  8. VIREAD [Concomitant]
     Active Substance: TENOFOVIR DISOPROXIL FUMARATE

REACTIONS (5)
  - Dysuria [Unknown]
  - Respiratory rate increased [Unknown]
  - Hyponatraemia [Recovering/Resolving]
  - Costovertebral angle tenderness [Unknown]
  - Hypertension [Unknown]

NARRATIVE: CASE EVENT DATE: 20160323
